FAERS Safety Report 16155730 (Version 1)
Quarter: 2019Q2

REPORT INFORMATION
  Report Type: Report from Study
  Country: BE (occurrence: BE)
  Receive Date: 20190404
  Receipt Date: 20190404
  Transmission Date: 20190711
  Serious: Yes (Death, Life-Threatening, Hospitalization)
  Sender: FDA-Public Use
  Company Number: BE-TEVA-2019-BE-1031925

PATIENT
  Age: 42 Year
  Sex: Male
  Weight: 88 kg

DRUGS (17)
  1. TEMESTA /00273201/ [Concomitant]
     Active Substance: LORAZEPAM
     Indication: INSOMNIA
     Dosage: 1 DOSAGE FORMS DAILY;
     Route: 048
     Dates: start: 201607
  2. CARBOPLATIN. [Suspect]
     Active Substance: CARBOPLATIN
     Dosage: UNK
     Route: 042
     Dates: start: 20160725
  3. AVELUMAB [Suspect]
     Active Substance: AVELUMAB
     Dosage: UNK
  4. DAFALGAN [Concomitant]
     Active Substance: ACETAMINOPHEN
     Indication: BONE PAIN
     Dosage: 1 GRAM DAILY;
     Route: 048
     Dates: start: 20160531, end: 20160801
  5. VALIUM [Concomitant]
     Active Substance: DIAZEPAM
     Indication: BONE PAIN
     Dosage: 10 MILLIGRAM DAILY;
     Route: 048
     Dates: start: 20160719
  6. GEMCITABINE HYDROCHLORIDE. [Suspect]
     Active Substance: GEMCITABINE HYDROCHLORIDE
     Indication: NON-SMALL CELL LUNG CANCER
     Dosage: UNK
     Route: 042
     Dates: start: 20160718
  7. NEPHRON [Concomitant]
     Indication: BONE PAIN
     Dosage: 10 MILLIGRAM DAILY; 5 MG, 2X/DAY
     Route: 048
     Dates: start: 20160720
  8. MOVICOL [Concomitant]
     Active Substance: POLYETHYLENE GLYCOL 3350\POTASSIUM CHLORIDE\SODIUM BICARBONATE\SODIUM CHLORIDE
     Indication: CONSTIPATION
     Dosage: UNK
     Route: 048
     Dates: start: 201607
  9. REDOMEX [Concomitant]
     Active Substance: AMITRIPTYLINE HYDROCHLORIDE
     Indication: BONE PAIN
     Dosage: 25 MILLIGRAM DAILY;
     Route: 048
     Dates: start: 20160617
  10. AVELUMAB [Suspect]
     Active Substance: AVELUMAB
     Indication: NON-SMALL CELL LUNG CANCER
     Dosage: 970 MG, CYCLICAL
     Route: 042
     Dates: start: 20160411
  11. QVAR [Concomitant]
     Active Substance: BECLOMETHASONE DIPROPIONATE
     Indication: COUGH
     Dosage: 50 UG (PUFF)
     Dates: start: 20160427
  12. AVELUMAB [Suspect]
     Active Substance: AVELUMAB
     Dosage: UNK
  13. AVELUMAB [Suspect]
     Active Substance: AVELUMAB
     Dosage: 900 MG, CYCLICAL
     Dates: end: 20160620
  14. CARBOPLATIN. [Suspect]
     Active Substance: CARBOPLATIN
     Indication: NON-SMALL CELL LUNG CANCER
     Dosage: UNK
     Route: 042
     Dates: start: 20160718
  15. GEMCITABINE HYDROCHLORIDE. [Suspect]
     Active Substance: GEMCITABINE HYDROCHLORIDE
     Dosage: UNK
     Route: 042
     Dates: start: 20160725
  16. AVELUMAB [Suspect]
     Active Substance: AVELUMAB
     Dosage: UNK
  17. METHADONE [Concomitant]
     Active Substance: METHADONE HYDROCHLORIDE
     Indication: BONE PAIN
     Dosage: 10 MILLIGRAM DAILY; 5 MG, 2X/DAY
     Route: 048
     Dates: start: 20160718

REACTIONS (2)
  - Febrile neutropenia [Recovered/Resolved]
  - Pneumonia [Recovered/Resolved]

NARRATIVE: CASE EVENT DATE: 20160801
